FAERS Safety Report 5250074-3 (Version None)
Quarter: 2007Q1

REPORT INFORMATION
  Report Type: 
  Country: None (occurrence: None)
  Receive Date: 20070228
  Receipt Date: 20060313
  Transmission Date: 20070707
  Serious: No
  Sender: FDA-Public Use
  Company Number: US-GLAXOSMITHKLINE-A0591935A

PATIENT
  Age: 48 Year
  Sex: Female

DRUGS (5)
  1. LAMICTAL [Suspect]
     Indication: BIPOLAR DISORDER
     Dosage: 200MG TWICE PER DAY
     Route: 048
     Dates: start: 20031101
  2. LITHIUM CARBONATE [Concomitant]
     Indication: BIPOLAR DISORDER
     Dosage: 900MG PER DAY
     Route: 048
     Dates: start: 20040201
  3. LEXAPRO [Concomitant]
     Dosage: 20MG TWICE PER DAY
     Route: 048
     Dates: start: 20060223
  4. LORAZEPAM [Concomitant]
     Dosage: .25MG AS REQUIRED
     Route: 048
     Dates: start: 20031101
  5. SYNTHROID [Concomitant]
     Dosage: 25MCG PER DAY
     Route: 048
     Dates: start: 20050701

REACTIONS (2)
  - DIZZINESS [None]
  - DYSGEUSIA [None]
